FAERS Safety Report 21773875 (Version 1)
Quarter: 2022Q4

REPORT INFORMATION
  Report Type: Spontaneous
  Country: US (occurrence: None)
  Receive Date: 20221222
  Receipt Date: 20221222
  Transmission Date: 20230113
  Serious: No
  Sender: FDA-Public Use
  Company Number: None

PATIENT
  Age: 79 Year
  Sex: Male

DRUGS (1)
  1. LENALIDOMIDE [Suspect]
     Active Substance: LENALIDOMIDE
     Dosage: 5MG OTHER ORAL
     Route: 048
     Dates: start: 202201

REACTIONS (2)
  - Therapy interrupted [None]
  - Platelet count decreased [None]

NARRATIVE: CASE EVENT DATE: 20221214
